FAERS Safety Report 9257267 (Version 1)
Quarter: 2013Q1

REPORT INFORMATION
  Report Type: Spontaneous
  Country: US (occurrence: None)
  Receive Date: 20121212
  Receipt Date: 20121212
  Transmission Date: 20140127
  Serious: No
  Sender: FDA-Public Use
  Company Number: 1208USA008284

PATIENT
  Age: 53 Year
  Sex: Male

DRUGS (3)
  1. VICTRELIS [Suspect]
     Indication: HEPATITIS C
     Route: 048
     Dates: start: 20121117
  2. PEGASYS (INTERFERON ALFA-2A) [Suspect]
     Indication: HEPATITIS C
     Dosage: UNK
  3. RIBAPAK (RIBAVIRIN) [Suspect]
     Dosage: UNK

REACTIONS (2)
  - Rash generalised [None]
  - Pruritus [None]
